FAERS Safety Report 7278952-4 (Version None)
Quarter: 2011Q1

REPORT INFORMATION
  Report Type: 
  Country: None (occurrence: None)
  Receive Date: 20110207
  Receipt Date: 20110125
  Transmission Date: 20110831
  Serious: Yes (Hospitalization, Other)
  Sender: FDA-Public Use
  Company Number: PHMT2006CA01252

PATIENT
  Sex: Male

DRUGS (11)
  1. INDAPAMIDE [Concomitant]
  2. REMERON [Concomitant]
  3. SANDOSTATIN LAR [Suspect]
     Indication: CARCINOID TUMOUR
     Dosage: 50 MG, ONCE A MONTH
     Dates: start: 20050202
  4. NITROGLYCERIN [Concomitant]
     Route: 062
  5. TIAZAC [Concomitant]
  6. SANDOSTATIN LAR [Suspect]
     Dosage: 60 MG, UNK
  7. SANDOSTATIN LAR [Suspect]
     Dosage: 50 MG EVERY 4 WEEKS
     Route: 030
  8. PRILOSEC [Concomitant]
  9. FENTANYL CITRATE [Concomitant]
     Route: 062
  10. METOPROLOL TARTRATE [Concomitant]
  11. SANDOSTATIN LAR [Suspect]
     Dosage: 30 MG, UNK
     Dates: end: 20091201

REACTIONS (31)
  - DYSPNOEA [None]
  - HYPOTENSION [None]
  - CHEST PAIN [None]
  - WHEEZING [None]
  - VOMITING [None]
  - PALPITATIONS [None]
  - BALANCE DISORDER [None]
  - GAIT DISTURBANCE [None]
  - HEADACHE [None]
  - WEIGHT DECREASED [None]
  - SKIN IRRITATION [None]
  - ARTERIOSCLEROSIS [None]
  - ELECTROCARDIOGRAM AMBULATORY [None]
  - BRADYCARDIA [None]
  - NAUSEA [None]
  - INJECTION SITE PAIN [None]
  - RASH PRURITIC [None]
  - SYNCOPE [None]
  - HEART RATE DECREASED [None]
  - CEREBROVASCULAR ACCIDENT [None]
  - DYSKINESIA [None]
  - HIATUS HERNIA [None]
  - DIARRHOEA [None]
  - HEMIPARESIS [None]
  - HEART RATE IRREGULAR [None]
  - FATIGUE [None]
  - LOSS OF CONSCIOUSNESS [None]
  - CHOLECYSTITIS [None]
  - PAIN [None]
  - GASTROOESOPHAGEAL REFLUX DISEASE [None]
  - FLUSHING [None]
